FAERS Safety Report 10336881 (Version 2)
Quarter: 2014Q3

REPORT INFORMATION
  Report Type: Spontaneous
  Country: PL (occurrence: PL)
  Receive Date: 20140723
  Receipt Date: 20140723
  Transmission Date: 20150326
  Serious: Yes (Other)
  Sender: FDA-Public Use
  Company Number: PL-ACTAVIS-2014-14627

PATIENT
  Age: 66 Year
  Sex: Female

DRUGS (4)
  1. CISPLATIN (UNKNOWN) [Suspect]
     Active Substance: CISPLATIN
     Indication: UTERINE LEIOMYOSARCOMA
     Dosage: UNK
     Route: 042
     Dates: start: 2009
  2. DACARBAZINE. [Suspect]
     Active Substance: DACARBAZINE
     Indication: UTERINE LEIOMYOSARCOMA
     Dosage: UNK
     Route: 065
     Dates: start: 2012
  3. DOXORUBICIN (UNKNOWN) [Suspect]
     Active Substance: DOXORUBICIN
     Indication: UTERINE LEIOMYOSARCOMA
     Dosage: 734 MG/M2, TOTAL
     Route: 042
     Dates: start: 2012
  4. DOXORUBICIN (UNKNOWN) [Suspect]
     Active Substance: DOXORUBICIN
     Dosage: 423 MG/M2, TOTAL
     Route: 042
     Dates: start: 2009

REACTIONS (7)
  - Cardiac failure chronic [Recovering/Resolving]
  - Left ventricular hypertrophy [None]
  - Ventricular hypokinesia [Unknown]
  - Uterine leiomyoma [None]
  - Dilatation ventricular [Unknown]
  - Disease recurrence [None]
  - Ejection fraction decreased [None]

NARRATIVE: CASE EVENT DATE: 2013
